FAERS Safety Report 7259278-1 (Version None)
Quarter: 2011Q1

REPORT INFORMATION
  Report Type: 
  Country: None (occurrence: None)
  Receive Date: 20110129
  Receipt Date: 20100730
  Transmission Date: 20110831
  Serious: No
  Sender: FDA-Public Use
  Company Number: US-ABBOTT-10P-163-0660874-00

PATIENT
  Age: 29 Year
  Sex: Male

DRUGS (4)
  1. ALINIA [Concomitant]
     Indication: GASTROINTESTINAL INFECTION
  2. LITHIUM [Concomitant]
     Indication: DEPRESSION
  3. IMIPRIAMINE [Concomitant]
     Indication: DEPRESSION
  4. HUMIRA [Suspect]
     Indication: CROHN'S DISEASE
     Dosage: LOADING DOSE
     Dates: start: 20100727

REACTIONS (1)
  - VOMITING [None]
